FAERS Safety Report 9000677 (Version 1)
Quarter: 2013Q1

REPORT INFORMATION
  Report Type: Spontaneous
  Country: US (occurrence: US)
  Receive Date: 20130107
  Receipt Date: 20130107
  Transmission Date: 20140127
  Serious: No
  Sender: FDA-Public Use
  Company Number: US-PFIZER INC-2013005283

PATIENT
  Age: 68 Year
  Sex: Female
  Weight: 65.76 kg

DRUGS (6)
  1. LYRICA [Suspect]
     Indication: HYPOAESTHESIA
     Dosage: 300 MG, 2X/DAY
     Dates: start: 200909, end: 201211
  2. GABAPENTIN [Suspect]
     Indication: HYPOAESTHESIA
     Dosage: 300 MG, 2X/DAY
     Dates: start: 20121207, end: 20121222
  3. HYDROCHLOROTHIAZIDE TRIAMTERENE [Suspect]
     Indication: BLOOD PRESSURE ABNORMAL
     Dosage: [TRIAMTERENE 37.5MG]/ [HYDROCHLOROTHIAZIDE 25MG] DAILY
  4. HYDROCHLOROTHIAZIDE TRIAMTERENE [Suspect]
     Indication: OEDEMA PERIPHERAL
  5. KLOR-CON [Concomitant]
     Indication: RENAL CANCER
     Dosage: 20 MG, DAILY
  6. KLOR-CON [Concomitant]
     Indication: COLON CANCER

REACTIONS (4)
  - Paraesthesia [Not Recovered/Not Resolved]
  - White blood cell count decreased [Unknown]
  - Intentional drug misuse [Unknown]
  - Drug ineffective [Not Recovered/Not Resolved]
